FAERS Safety Report 6071348-2 (Version None)
Quarter: 2009Q1

REPORT INFORMATION
  Report Type: 
  Country: None (occurrence: None)
  Receive Date: 20090204
  Receipt Date: 20090120
  Transmission Date: 20090719
  Serious: Yes (Death)
  Sender: FDA-Public Use
  Company Number: AE 2009-011

PATIENT
  Age: 43 Year
  Sex: Female

DRUGS (1)
  1. FAZACLO ODT [Suspect]
     Dosage: 150 MG DAILY; PO
     Route: 048
     Dates: start: 20080301, end: 20081227

REACTIONS (1)
  - MYOCARDIAL INFARCTION [None]
